FAERS Safety Report 25567596 (Version 3)
Quarter: 2025Q3

REPORT INFORMATION
  Report Type: Spontaneous
  Country: EU (occurrence: EU)
  Receive Date: 20250716
  Receipt Date: 20250822
  Transmission Date: 20251020
  Serious: Yes (Other)
  Sender: OTSUKA
  Company Number: EU-MMM-Otsuka-0BY8MG4A

PATIENT
  Age: 50 Year
  Sex: Female

DRUGS (3)
  1. ABILIFY MAINTENA [Suspect]
     Active Substance: ARIPIPRAZOLE
     Indication: Product used for unknown indication
     Route: 065
  2. ABILIFY [Suspect]
     Active Substance: ARIPIPRAZOLE
     Indication: Product used for unknown indication
     Route: 065
  3. ABILIFY MAINTENA [Suspect]
     Active Substance: ARIPIPRAZOLE
     Indication: Product used for unknown indication
     Route: 065

REACTIONS (2)
  - Paraesthesia [Not Recovered/Not Resolved]
  - Symptom recurrence [Not Recovered/Not Resolved]
